FAERS Safety Report 19693430 (Version 2)
Quarter: 2021Q3

REPORT INFORMATION
  Report Type: Report from Study
  Country: BR (occurrence: BR)
  Receive Date: 20210813
  Receipt Date: 20210824
  Transmission Date: 20211014
  Serious: Yes (Hospitalization, Disabling, Other)
  Sender: FDA-Public Use
  Company Number: BR-BIOGEN-2021BI01039033

PATIENT
  Sex: Female

DRUGS (1)
  1. TYSABRI [Suspect]
     Active Substance: NATALIZUMAB
     Indication: MULTIPLE SCLEROSIS
     Route: 042
     Dates: start: 202104

REACTIONS (10)
  - Off label use [Not Recovered/Not Resolved]
  - Loss of consciousness [Recovered/Resolved]
  - Mass [Unknown]
  - Cough [Unknown]
  - Pruritus [Unknown]
  - Erythema [Unknown]
  - Flushing [Unknown]
  - Blindness [Not Recovered/Not Resolved]
  - COVID-19 [Recovered/Resolved]
  - Ocular hyperaemia [Unknown]

NARRATIVE: CASE EVENT DATE: 2021
